FAERS Safety Report 15775623 (Version 5)
Quarter: 2021Q2

REPORT INFORMATION
  Report Type: Other
  Country: US (occurrence: US)
  Receive Date: 20181231
  Receipt Date: 20210525
  Transmission Date: 20210716
  Serious: Yes (Hospitalization, Other)
  Sender: FDA-Public Use
  Company Number: US-ROCHE-2234638

PATIENT
  Age: 64 Year
  Sex: Female
  Weight: 74.91 kg

DRUGS (12)
  1. OCREVUS [Suspect]
     Active Substance: OCRELIZUMAB
     Indication: RELAPSING MULTIPLE SCLEROSIS
     Dosage: DATE OF TREATMENT: 15/FEB/2018, 01/MAR/2018, 24/AUG/2018, 01/MAR/2019?DATE OF TREATMENT: 09/APR/2021
     Route: 042
     Dates: start: 201603
  2. NEXIUM [Concomitant]
     Active Substance: ESOMEPRAZOLE MAGNESIUM
     Indication: GASTROOESOPHAGEAL REFLUX DISEASE
     Route: 048
  3. VITAMIN C [Concomitant]
     Active Substance: ASCORBIC ACID
  4. OCREVUS [Suspect]
     Active Substance: OCRELIZUMAB
     Indication: RELAPSING-REMITTING MULTIPLE SCLEROSIS
     Dosage: RE?START OCREVUS THERAPY
     Route: 042
     Dates: start: 20200320
  5. BOTOX [Concomitant]
     Active Substance: ONABOTULINUMTOXINA
     Indication: HYPERTONIC BLADDER
     Dates: start: 2013, end: 201302
  6. COMPAZINE [Concomitant]
     Active Substance: PROCHLORPERAZINE MALEATE
     Indication: NAUSEA
     Dosage: ONGOING: YES
     Route: 048
  7. AMLODIPINE [Concomitant]
     Active Substance: AMLODIPINE BESYLATE
     Indication: HYPERTENSION
  8. DIAZEPAM. [Concomitant]
     Active Substance: DIAZEPAM
     Dosage: ONGOING: YES
     Route: 048
  9. HYDROCODONE [Concomitant]
     Active Substance: HYDROCODONE
     Indication: PAIN
     Dosage: 10?235 MG
     Route: 048
  10. OCREVUS [Suspect]
     Active Substance: OCRELIZUMAB
     Route: 042
     Dates: start: 201802
  11. LISINOPRIL. [Concomitant]
     Active Substance: LISINOPRIL
     Indication: HYPERTENSION
     Dosage: ONGOING YES
     Route: 048
  12. BACTRIM [Concomitant]
     Active Substance: SULFAMETHOXAZOLE\TRIMETHOPRIM
     Dosage: ONGOING YES
     Route: 048

REACTIONS (16)
  - Muscular weakness [Unknown]
  - Pyrexia [Not Recovered/Not Resolved]
  - Off label use [Unknown]
  - Urinary tract infection [Recovered/Resolved]
  - Multiple sclerosis [Recovered/Resolved]
  - Fatigue [Recovered/Resolved]
  - Gait disturbance [Unknown]
  - Fall [Unknown]
  - Sepsis [Recovered/Resolved]
  - Hemiparesis [Unknown]
  - Nausea [Recovered/Resolved]
  - Urine odour abnormal [Not Recovered/Not Resolved]
  - Urine abnormality [Not Recovered/Not Resolved]
  - Product monitoring error [Unknown]
  - Asthenia [Not Recovered/Not Resolved]
  - Decreased immune responsiveness [Recovered/Resolved]

NARRATIVE: CASE EVENT DATE: 20180215
